FAERS Safety Report 5594121-8 (Version None)
Quarter: 2008Q1

REPORT INFORMATION
  Report Type: 
  Country: None (occurrence: None)
  Receive Date: 20080116
  Receipt Date: 20080109
  Transmission Date: 20080703
  Serious: Yes (Other)
  Sender: FDA-Public Use
  Company Number: FR-PFIZER INC-2008003027

PATIENT
  Sex: Female

DRUGS (1)
  1. CHANTIX [Suspect]

REACTIONS (8)
  - AGITATION [None]
  - HALLUCINATION [None]
  - HALLUCINATION, VISUAL [None]
  - HOT FLUSH [None]
  - INSOMNIA [None]
  - NECK PAIN [None]
  - SOMNOLENCE [None]
  - VERTIGO [None]
